FAERS Safety Report 8107874-1 (Version None)
Quarter: 2012Q1

REPORT INFORMATION
  Report Type: 
  Country: None (occurrence: None)
  Receive Date: 20120202
  Receipt Date: 20120131
  Transmission Date: 20120608
  Serious: Yes (Other)
  Sender: FDA-Public Use
  Company Number: US-AMGEN-USASP2012003046

PATIENT
  Sex: Female
  Weight: 67.574 kg

DRUGS (2)
  1. ARANESP [Concomitant]
     Dosage: 6 MG, UNK
  2. NPLATE [Suspect]
     Indication: IDIOPATHIC THROMBOCYTOPENIC PURPURA
     Dosage: UNK UNK, QWK
     Route: 058
     Dates: start: 20110726, end: 20120112

REACTIONS (4)
  - DRUG INEFFECTIVE [None]
  - GINGIVAL BLEEDING [None]
  - TOOTH ABSCESS [None]
  - PLATELET COUNT DECREASED [None]
